FAERS Safety Report 5341859-3 (Version None)
Quarter: 2007Q2

REPORT INFORMATION
  Report Type: 
  Country: None (occurrence: None)
  Receive Date: 20070601
  Receipt Date: 20070522
  Transmission Date: 20071010
  Serious: Yes (Other)
  Sender: FDA-Public Use
  Company Number: US-JNJFOC-20070505924

PATIENT
  Sex: Female
  Weight: 58.97 kg

DRUGS (4)
  1. TOPAMAX [Suspect]
     Indication: MIGRAINE PROPHYLAXIS
     Route: 048
  2. NEURONTIN [Concomitant]
     Indication: MIGRAINE
  3. AMITRIPTYLINE HCL [Concomitant]
     Indication: MIGRAINE
  4. AMANTADINE HCL [Concomitant]
     Indication: DEPRESSED LEVEL OF CONSCIOUSNESS

REACTIONS (6)
  - ABDOMINAL DISTENSION [None]
  - CONFUSIONAL STATE [None]
  - DISSOCIATION [None]
  - EMOTIONAL DISORDER [None]
  - FATIGUE [None]
  - VISUAL DISTURBANCE [None]
